FAERS Safety Report 5417370-8 (Version None)
Quarter: 2007Q3

REPORT INFORMATION
  Report Type: 
  Country: None (occurrence: None)
  Receive Date: 20070718
  Receipt Date: 20070312
  Transmission Date: 20080115
  Serious: Yes (Other)
  Sender: FDA-Public Use
  Company Number: 2005078604

PATIENT
  Age: 54 Year
  Sex: Female
  Weight: 59 kg

DRUGS (10)
  1. CELEBREX [Suspect]
     Indication: OSTEOARTHRITIS
     Dosage: 200 MG (200 MG, 1 IN 1 D), ORAL
     Route: 048
     Dates: start: 20030201
  2. CARDIZEM CD [Concomitant]
  3. ESTRADIOL [Concomitant]
  4. GEMFIBROZIL [Concomitant]
  5. PROTONIX [Concomitant]
  6. LIPITOR [Concomitant]
  7. XANAX [Concomitant]
  8. PEPTO-BISMOL [Concomitant]
  9. VASOTEC [Concomitant]
  10. ACETAMINOPHEN [Concomitant]

REACTIONS (1)
  - MYOCARDIAL INFARCTION [None]
